FAERS Safety Report 16498798 (Version 2)
Quarter: 2019Q3

REPORT INFORMATION
  Report Type: Spontaneous
  Country: US (occurrence: US)
  Receive Date: 20190630
  Receipt Date: 20190731
  Transmission Date: 20191004
  Serious: No
  Sender: FDA-Public Use
  Company Number: US-JNJFOC-20190618142

PATIENT

DRUGS (1)
  1. GOLIMUMAB SOLUTION FOR INJECTION IN PRE-FILLED PEN [Suspect]
     Active Substance: GOLIMUMAB
     Indication: PRODUCT USED FOR UNKNOWN INDICATION
     Route: 058

REACTIONS (1)
  - Therapeutic product effect decreased [Unknown]
